FAERS Safety Report 6254028-X (Version None)
Quarter: 2009Q3

REPORT INFORMATION
  Report Type: 
  Country: None (occurrence: None)
  Receive Date: 20090702
  Receipt Date: 20090623
  Transmission Date: 20100115
  Serious: Yes (Death, Hospitalization)
  Sender: FDA-Public Use
  Company Number: DE-ROCHE-640966

PATIENT
  Sex: Female
  Weight: 73.5 kg

DRUGS (1)
  1. MIRCERA [Suspect]
     Dosage: 29 MAY 2009 (EST) LAST DOSAGE PRIOR TO DEATH
     Route: 042
     Dates: start: 20090429, end: 20090529

REACTIONS (2)
  - GASTROINTESTINAL HAEMORRHAGE [None]
  - PLEURAL EFFUSION [None]
